FAERS Safety Report 5553042-7 (Version None)
Quarter: 2007Q4

REPORT INFORMATION
  Report Type: 
  Country: None (occurrence: None)
  Receive Date: 20071205
  Receipt Date: 20071127
  Transmission Date: 20080405
  Serious: Yes (Other)
  Sender: FDA-Public Use
  Company Number: 2007336104

PATIENT
  Age: 4 Year
  Sex: Male
  Weight: 21.7727 kg

DRUGS (5)
  1. LUDENS THROAT DROPS WILD CHERRY (PECTIN) [Suspect]
     Dosage: 20 DROPS 1 TIME, ORAL
     Route: 048
     Dates: start: 20071127, end: 20071127
  2. LANTUS [Concomitant]
  3. HUMALOG [Concomitant]
  4. TRIAMINIC-12 [Concomitant]
  5. DRUG UNSPECIFIED (DRUG UNSPECIFIED) [Concomitant]

REACTIONS (3)
  - ACCIDENTAL DRUG INTAKE BY CHILD [None]
  - BLOOD GLUCOSE INCREASED [None]
  - PSYCHOMOTOR HYPERACTIVITY [None]
